FAERS Safety Report 6618281-2 (Version None)
Quarter: 2010Q1

REPORT INFORMATION
  Report Type: 
  Country: None (occurrence: None)
  Receive Date: 20100308
  Receipt Date: 20100227
  Transmission Date: 20100710
  Serious: Yes (Hospitalization)
  Sender: FDA-Public Use
  Company Number: CN-JNJFOC-20100300364

PATIENT
  Age: 20 Year
  Sex: Female

DRUGS (1)
  1. SPORANOX [Suspect]
     Indication: TINEA PEDIS
     Dosage: 200MG/CAPSULE/100MG/QN
     Route: 048

REACTIONS (5)
  - ABDOMINAL PAIN [None]
  - DIARRHOEA [None]
  - DIZZINESS [None]
  - INTENTIONAL DRUG MISUSE [None]
  - SHOCK [None]
